FAERS Safety Report 21159644 (Version 4)
Quarter: 2023Q1

REPORT INFORMATION
  Report Type: Other
  Country: US (occurrence: None)
  Receive Date: 20220802
  Receipt Date: 20230303
  Transmission Date: 20230418
  Serious: Yes (Other)
  Sender: FDA-Public Use
  Company Number: US-ROCHE-3146980

PATIENT
  Age: 63 Year
  Sex: Female

DRUGS (2)
  1. ESBRIET [Suspect]
     Active Substance: PIRFENIDONE
     Indication: Pneumonia
     Dosage: TAKE 1 TABLET BY MOUTH 3 TIMES A DAY WITH FOOD
     Route: 048
  2. ESBRIET [Suspect]
     Active Substance: PIRFENIDONE
     Indication: Interstitial lung disease

REACTIONS (8)
  - Deafness [Unknown]
  - Off label use [Unknown]
  - COVID-19 [Unknown]
  - Pulmonary fibrosis [Unknown]
  - Renal pain [Unknown]
  - Fatigue [Unknown]
  - Somnolence [Unknown]
  - Self-medication [Unknown]
